FAERS Safety Report 9626941 (Version 1)
Quarter: 2013Q4

REPORT INFORMATION
  Report Type: Spontaneous
  Country: CZ (occurrence: CZ)
  Receive Date: 20131016
  Receipt Date: 20131016
  Transmission Date: 20140711
  Serious: Yes (Other)
  Sender: FDA-Public Use
  Company Number: CZ-PFIZER INC-2013295705

PATIENT
  Age: 25 Year
  Sex: Male

DRUGS (2)
  1. SOLU-MEDROL [Suspect]
     Indication: MULTIPLE SCLEROSIS
     Dosage: 5 G, UNK
  2. SOLU-MEDROL [Suspect]
     Dosage: 3 G, UNK

REACTIONS (1)
  - Candida infection [Unknown]
